FAERS Safety Report 7084697-6 (Version None)
Quarter: 2010Q4

REPORT INFORMATION
  Report Type: 
  Country: None (occurrence: None)
  Receive Date: 20101104
  Receipt Date: 20101101
  Transmission Date: 20110411
  Serious: Yes (Other)
  Sender: FDA-Public Use
  Company Number: US-AMGEN-QUU424319

PATIENT

DRUGS (8)
  1. NPLATE [Suspect]
     Indication: IDIOPATHIC THROMBOCYTOPENIC PURPURA
     Dosage: 600 A?G, UNK
     Dates: start: 20090708, end: 20090805
  2. NPLATE [Suspect]
     Dates: start: 20090708, end: 20090805
  3. ELTROMBOPAG [Concomitant]
     Dosage: 75 MG, QD
     Route: 048
     Dates: start: 20090121, end: 20090712
  4. VERAPAMIL [Concomitant]
     Dosage: 240 MG, UNK
  5. ENALAPRIL MALEATE [Concomitant]
     Dosage: 20 MG, BID
  6. ATORVASTATIN CALCIUM [Concomitant]
     Dosage: 10 MG, UNK
  7. GLIPIZIDE [Concomitant]
     Dosage: 10 MG, UNK
  8. INSULIN HUMAN INJECTION [Concomitant]

REACTIONS (1)
  - DRUG INEFFECTIVE [None]
